FAERS Safety Report 19666695 (Version 1)
Quarter: 2021Q3

REPORT INFORMATION
  Report Type: Spontaneous
  Country: US (occurrence: US)
  Receive Date: 20210806
  Receipt Date: 20210806
  Transmission Date: 20211014
  Serious: Yes (Other)
  Sender: FDA-Public Use
  Company Number: None

PATIENT
  Sex: Male
  Weight: 76.5 kg

DRUGS (15)
  1. OMEPRAZOLE. [Concomitant]
     Active Substance: OMEPRAZOLE
  2. LOPERAMIDE [Concomitant]
     Active Substance: LOPERAMIDE
  3. XOLAIR [Suspect]
     Active Substance: OMALIZUMAB
     Indication: CHRONIC SPONTANEOUS URTICARIA
  4. DORNASE ALF [Concomitant]
  5. TRIKAFTA [Concomitant]
     Active Substance: ELEXACAFTOR\IVACAFTOR\TEZACAFTOR
  6. XOPENEX [Concomitant]
     Active Substance: LEVALBUTEROL HYDROCHLORIDE
  7. HYDROXYZINE [Concomitant]
     Active Substance: HYDROXYZINE HYDROCHLORIDE
  8. HYPERTONIC SALINE [Concomitant]
     Active Substance: SODIUM CHLORIDE
  9. DIPHENHYDRAMINE. [Concomitant]
     Active Substance: DIPHENHYDRAMINE
  10. TOBRAMYCIN. [Concomitant]
     Active Substance: TOBRAMYCIN
  11. CREON [Concomitant]
     Active Substance: PANCRELIPASE AMYLASE\PANCRELIPASE LIPASE\PANCRELIPASE PROTEASE
  12. LEVOCETIRIZINE [Concomitant]
     Active Substance: LEVOCETIRIZINE
  13. DULOXETINE. [Concomitant]
     Active Substance: DULOXETINE
  14. BISOPROLOL [Concomitant]
     Active Substance: BISOPROLOL
  15. SHORT ACTING INSULIN [Concomitant]
     Active Substance: INSULIN NOS

REACTIONS (5)
  - Staphylococcal sepsis [None]
  - Immune system disorder [None]
  - Folliculitis [None]
  - Rhinorrhoea [None]
  - General physical health deterioration [None]
